FAERS Safety Report 5868806-X (Version None)
Quarter: 2008Q3

REPORT INFORMATION
  Report Type: 
  Country: None (occurrence: None)
  Receive Date: 20080903
  Receipt Date: 20080827
  Transmission Date: 20090109
  Serious: Yes (Hospitalization, Other)
  Sender: FDA-Public Use
  Company Number: US-ASTRAZENECA-2008UW07754

PATIENT
  Age: 10523 Day
  Sex: Female
  Weight: 114.3 kg

DRUGS (4)
  1. SEROQUEL [Suspect]
     Indication: BIPOLAR DISORDER
     Route: 048
     Dates: start: 20021115, end: 20030801
  2. SEROQUEL [Suspect]
     Route: 048
     Dates: start: 20030115, end: 20030801
  3. GEODON [Concomitant]
     Dates: start: 20040101, end: 20080101
  4. TOPAMAX [Concomitant]

REACTIONS (5)
  - ARTERIAL GRAFT [None]
  - BLOOD CHOLESTEROL INCREASED [None]
  - CATHETERISATION CARDIAC [None]
  - DIABETES MELLITUS [None]
  - STAPHYLOCOCCAL INFECTION [None]
